FAERS Safety Report 25645552 (Version 1)
Quarter: 2025Q3

REPORT INFORMATION
  Report Type: Spontaneous
  Country: US (occurrence: None)
  Receive Date: 20250805
  Receipt Date: 20250805
  Transmission Date: 20251021
  Serious: No
  Sender: FDA-CTU
  Company Number: None

PATIENT
  Sex: Female

DRUGS (6)
  1. REVLIMID [Suspect]
     Active Substance: LENALIDOMIDE
     Dosage: FREQUENCY : DAILY;?
     Dates: start: 20220216
  2. ASPIRIN CHLO CHW [Concomitant]
  3. REVLIMID CAP [Concomitant]
  4. REVLIMID CAP [Concomitant]
  5. SHINGRIX INJ 50/0.5ML [Concomitant]
  6. VITAMIN D3 CAP 400UNIT [Concomitant]

REACTIONS (2)
  - Diarrhoea [None]
  - Nausea [None]
